FAERS Safety Report 4640704-9 (Version None)
Quarter: 2005Q2

REPORT INFORMATION
  Report Type: 
  Country: None (occurrence: None)
  Receive Date: 20050419
  Receipt Date: 20050413
  Transmission Date: 20051028
  Serious: Yes (Disabling, Other)
  Sender: FDA-Public Use
  Company Number: GBWYE557305APR05

PATIENT
  Age: 31 Year
  Sex: Female

DRUGS (3)
  1. OVRANETTE (LEONORGESTREL/ETHINYL ESTRADIOL, TABLET, 0) [Suspect]
     Indication: CONTRACEPTION
     Dosage: ORAL
     Route: 048
     Dates: start: 20041201, end: 20050201
  2. DESLORATADINE (DESLORATADINE) [Concomitant]
  3. FLIXONASE (FLUTICASONE PROPIONATE) [Concomitant]

REACTIONS (2)
  - CONDITION AGGRAVATED [None]
  - MULTIPLE SCLEROSIS [None]
